FAERS Safety Report 21266526 (Version 1)
Quarter: 2022Q3

REPORT INFORMATION
  Report Type: Spontaneous
  Country: US (occurrence: None)
  Receive Date: 20220829
  Receipt Date: 20220829
  Transmission Date: 20221027
  Serious: No
  Sender: FDA-Public Use
  Company Number: 2022A297763

PATIENT
  Age: 629 Month
  Sex: Female
  Weight: 77.6 kg

DRUGS (1)
  1. FASENRA [Suspect]
     Active Substance: BENRALIZUMAB
     Indication: Asthma
     Dosage: 30MG/ML EVERY EIGHT WEEKS
     Route: 055
     Dates: start: 2020

REACTIONS (7)
  - Injection site pain [Recovered/Resolved]
  - Pulmonary congestion [Recovering/Resolving]
  - Cough [Recovering/Resolving]
  - COVID-19 [Recovered/Resolved]
  - Device leakage [Unknown]
  - Product dose omission issue [Unknown]
  - Wrong technique in device usage process [Recovered/Resolved]

NARRATIVE: CASE EVENT DATE: 20220501
